FAERS Safety Report 8129724-X (Version None)
Quarter: 2012Q1

REPORT INFORMATION
  Report Type: 
  Country: None (occurrence: None)
  Receive Date: 20120210
  Receipt Date: 20120206
  Transmission Date: 20120608
  Serious: Yes (Death, Hospitalization)
  Sender: FDA-Public Use
  Company Number: US-B.I. PHARMACEUTICALS,INC./RIDGEFIELD-2011-BP-28158BP

PATIENT
  Sex: Female

DRUGS (13)
  1. LEVOTHYROXINE SODIUM [Concomitant]
  2. LASIX [Concomitant]
  3. SPIRONOLACTONE [Concomitant]
  4. PROZAC [Concomitant]
  5. BUDESONIDE [Concomitant]
  6. TRAMADOL HYDROCHLORIDE AND ACETAMINOPHEN [Concomitant]
     Dates: start: 20110304
  7. DOXYCYCLINE [Concomitant]
     Dates: start: 20110629
  8. NEXIUM [Concomitant]
     Dates: start: 20110225
  9. CIPROFLOXACIN [Concomitant]
     Dates: start: 20111107
  10. COMBIVENT [Concomitant]
     Dates: start: 20111122
  11. PRADAXA [Suspect]
     Indication: ATRIAL FIBRILLATION
     Dosage: 300 MG
     Route: 048
     Dates: start: 20101110
  12. PRAVASTATIN [Concomitant]
  13. AZITHROMYCIN [Concomitant]
     Dates: start: 20110801

REACTIONS (3)
  - BLEEDING VARICOSE VEIN [None]
  - CREATININE RENAL CLEARANCE DECREASED [None]
  - EXSANGUINATION [None]
